FAERS Safety Report 19500437 (Version 1)
Quarter: 2021Q3

REPORT INFORMATION
  Report Type: Spontaneous
  Country: US (occurrence: US)
  Receive Date: 20210702
  Receipt Date: 20210702
  Transmission Date: 20211014
  Serious: Yes (Other)
  Sender: FDA-Public Use
  Company Number: None

PATIENT
  Age: 56 Year
  Sex: Female
  Weight: 64.41 kg

DRUGS (3)
  1. APRISO [Concomitant]
     Active Substance: MESALAMINE
  2. CANASA SUPPORSITORY [Concomitant]
  3. MESALAMINE SUPPOSITORY [Suspect]
     Active Substance: MESALAMINE
     Indication: PROCTITIS ULCERATIVE
     Dosage: ?          QUANTITY:1 SUPPORSITORY;?
     Dates: end: 202001

REACTIONS (4)
  - Proctitis ulcerative [None]
  - Abdominal pain [None]
  - Rectal haemorrhage [None]
  - Diarrhoea [None]

NARRATIVE: CASE EVENT DATE: 20200111
